FAERS Safety Report 5080830-6 (Version None)
Quarter: 2006Q3

REPORT INFORMATION
  Report Type: 
  Country: None (occurrence: None)
  Receive Date: 20060810
  Receipt Date: 20050805
  Transmission Date: 20061208
  Serious: Yes (Hospitalization)
  Sender: FDA-Public Use
  Company Number: 2005-01414

PATIENT
  Age: 69 Year
  Sex: Female

DRUGS (3)
  1. VELCADE [Suspect]
     Indication: PLASMACYTOMA
     Dosage: INTRAVENOUS
     Route: 042
     Dates: start: 20050124, end: 20050510
  2. PANTOZOL (PANTOPRAZOLE SODIUM) [Concomitant]
  3. NOVALGIN (METAMIZOLE SODIUM) [Concomitant]

REACTIONS (8)
  - BUNDLE BRANCH BLOCK RIGHT [None]
  - CHEST PAIN [None]
  - HAEMOGLOBIN DECREASED [None]
  - MALIGNANT NEOPLASM PROGRESSION [None]
  - MULTIPLE MYELOMA [None]
  - MYOCARDIAL INFARCTION [None]
  - OSTEOLYSIS [None]
  - TACHYCARDIA [None]
